FAERS Safety Report 5025876-9 (Version None)
Quarter: 2006Q2

REPORT INFORMATION
  Report Type: 
  Country: None (occurrence: None)
  Receive Date: 20060427
  Receipt Date: 20050427
  Transmission Date: 20061013
  Serious: Yes (Other)
  Sender: FDA-Public Use
  Company Number: 2005067716

PATIENT
  Age: 7 Year
  Sex: Female
  Weight: 19.9583 kg

DRUGS (2)
  1. ZITHROMAX [Suspect]
     Indication: BRONCHITIS
     Dosage: 120 MG (1 IN 1 D), ORAL
     Route: 048
     Dates: start: 20050425, end: 20050426
  2. ZITHROMAX [Suspect]
     Indication: EAR INFECTION
     Dosage: 120 MG (1 IN 1 D), ORAL
     Route: 048
     Dates: start: 20050425, end: 20050426

REACTIONS (3)
  - HYPERSENSITIVITY [None]
  - PRURITUS [None]
  - RASH [None]
